FAERS Safety Report 9014728 (Version 1)
Quarter: 2013Q1

REPORT INFORMATION
  Report Type: Spontaneous
  Country: US (occurrence: US)
  Receive Date: 20130115
  Receipt Date: 20130115
  Transmission Date: 20140127
  Serious: Yes (Hospitalization)
  Sender: FDA-Public Use
  Company Number: US-009507513-1301USA003290

PATIENT
  Age: 8 Year
  Sex: Female

DRUGS (6)
  1. SINGULAIR [Suspect]
     Dosage: 5 MG PER DAY
     Route: 048
  2. DESLORATADINE [Suspect]
     Indication: ASTHMA
     Route: 048
  3. BRICANYL [Suspect]
     Dosage: RESPIRATORY (INHALATION)
  4. XOLAIR [Suspect]
     Dosage: 300 MG MONTHLY
     Route: 058
  5. SEREVENT [Suspect]
     Dosage: 25 MCG TWICE PER DAY, RESPIRATORY (INHALATION)
  6. SERETIDE [Suspect]
     Dosage: RESPIRATORY (INHALATION)

REACTIONS (9)
  - Vertigo [Unknown]
  - Tachycardia [Unknown]
  - Sinus tachycardia [Unknown]
  - Paraesthesia [Unknown]
  - Palpitations [Unknown]
  - Muscular weakness [Unknown]
  - Malaise [Unknown]
  - Headache [Unknown]
  - Feeling hot [Unknown]
